FAERS Safety Report 4727627-1 (Version None)
Quarter: 2005Q3

REPORT INFORMATION
  Report Type: 
  Country: None (occurrence: None)
  Receive Date: 20050727
  Receipt Date: 20050727
  Transmission Date: 20060218
  Serious: Yes (Hospitalization)
  Sender: FDA-Public Use
  Company Number: None

PATIENT
  Age: 74 Year
  Sex: Male

DRUGS (12)
  1. CLINDAMYCIN [Suspect]
     Indication: PNEUMONIA ASPIRATION
     Dosage: 300MG PO Q6H
     Route: 048
     Dates: start: 20050601, end: 20050606
  2. GATIFLOXACIN [Suspect]
     Indication: URINARY TRACT INFECTION
     Dosage: 400 MG PO Q24H
     Route: 048
     Dates: start: 20050601, end: 20050606
  3. HYDROCHLOROTHIAZIDE [Concomitant]
  4. DOCUSATE [Concomitant]
  5. MULTI-VITAMIN [Concomitant]
  6. FELODIPINE [Concomitant]
  7. PLAVIX [Concomitant]
  8. ASPIRIN [Concomitant]
  9. OXYCODONE AND ACETAMINOPHEN [Concomitant]
  10. BUSPIRONE [Concomitant]
  11. DECUBITUS ULCER SUPPLIES [Concomitant]
  12. PAPIN UREA AND CURSOL [Concomitant]

REACTIONS (2)
  - DIARRHOEA [None]
  - HYPOTENSION [None]
